FAERS Safety Report 4410877-1 (Version None)
Quarter: 2004Q3

REPORT INFORMATION
  Report Type: 
  Country: None (occurrence: None)
  Receive Date: 20040728
  Receipt Date: 20040728
  Transmission Date: 20050211
  Serious: Yes (Hospitalization)
  Sender: FDA-Public Use
  Company Number: None

PATIENT
  Age: 58 Year
  Sex: Female
  Weight: 76 kg

DRUGS (1)
  1. ZELNORM [Suspect]
     Indication: IRRITABLE BOWEL SYNDROME
     Dosage: 3MG PO  DAILY
     Route: 048

REACTIONS (3)
  - COLITIS ISCHAEMIC [None]
  - ENTEROCOLITIS INFECTIOUS [None]
  - HAEMOLYTIC URAEMIC SYNDROME [None]
